FAERS Safety Report 10086411 (Version 1)
Quarter: 2014Q2

REPORT INFORMATION
  Report Type: Spontaneous
  Country: US (occurrence: US)
  Receive Date: 20140418
  Receipt Date: 20140418
  Transmission Date: 20141212
  Serious: No
  Sender: FDA-Public Use
  Company Number: US-ENDO PHARMACEUTICALS INC.-FURO20130006

PATIENT
  Sex: Female
  Weight: 90.8 kg

DRUGS (3)
  1. FUROSEMIDE TABLETS 20MG [Suspect]
     Indication: LOCAL SWELLING
     Route: 048
     Dates: start: 2013, end: 2013
  2. INSULIN [Concomitant]
     Indication: PRODUCT USED FOR UNKNOWN INDICATION
     Dosage: UNKNOWN
     Route: 065
  3. VITAMIN C [Concomitant]
     Indication: VITAMIN SUPPLEMENTATION
     Dosage: UNKNOWN
     Route: 065

REACTIONS (1)
  - Somnolence [Recovered/Resolved]
